FAERS Safety Report 13753328 (Version 1)
Quarter: 2017Q3

REPORT INFORMATION
  Report Type: Report from Study
  Country: None (occurrence: US)
  Receive Date: 20170714
  Receipt Date: 20170714
  Transmission Date: 20171127
  Serious: Yes (Other)
  Sender: FDA-Public Use
  Company Number: US-IPSEN BIOPHARMACEUTICALS, INC.-2009-1324

PATIENT
  Age: 8 Year
  Sex: Male
  Weight: 21.45 kg

DRUGS (4)
  1. FLOVENT [Concomitant]
     Active Substance: FLUTICASONE PROPIONATE
     Indication: PRODUCT USED FOR UNKNOWN INDICATION
     Dosage: NOT REPORTED
     Route: 065
  2. INCRELEX [Suspect]
     Active Substance: MECASERMIN
     Indication: INSULIN-LIKE GROWTH FACTOR DECREASED
     Dosage: 214.44UG/KG
     Route: 065
     Dates: start: 20090225
  3. SINGULAIR [Concomitant]
     Active Substance: MONTELUKAST SODIUM
     Indication: PRODUCT USED FOR UNKNOWN INDICATION
     Dosage: NOT REPORTED
     Route: 065
  4. ALBUTEROL. [Concomitant]
     Active Substance: ALBUTEROL
     Indication: PRODUCT USED FOR UNKNOWN INDICATION
     Dosage: NOT REPORTED
     Route: 065

REACTIONS (1)
  - Idiopathic intracranial hypertension [None]

NARRATIVE: CASE EVENT DATE: 20090428
